FAERS Safety Report 7600370-7 (Version None)
Quarter: 2011Q3

REPORT INFORMATION
  Report Type: 
  Country: None (occurrence: None)
  Receive Date: 20110711
  Receipt Date: 20110628
  Transmission Date: 20111222
  Serious: Yes (Hospitalization, Other)
  Sender: FDA-Public Use
  Company Number: US-ELI_LILLY_AND_COMPANY-US201011005664

PATIENT
  Sex: Female

DRUGS (10)
  1. MULTI-VITAMIN [Concomitant]
  2. CALCIUM MAGNESIUM CITRATE [Concomitant]
  3. BONIVA [Concomitant]
  4. FORTEO [Suspect]
     Dosage: 20 UG, QD
     Route: 065
     Dates: end: 20110525
  5. CITALOPRAM HYDROBROMIDE [Concomitant]
  6. FORTEO [Suspect]
     Indication: OSTEOPOROSIS
     Dosage: 20 UG, QD
     Route: 065
     Dates: start: 20101003
  7. VITAMIN D [Concomitant]
  8. FERROUS SULFATE TAB [Concomitant]
  9. GLUCOSAMINE CHONDROITIN [Concomitant]
  10. LEVOTHYROXINE SODIUM [Concomitant]

REACTIONS (3)
  - MASTICATION DISORDER [None]
  - SALIVARY GLAND CANCER [None]
  - INJECTION SITE REACTION [None]
